FAERS Safety Report 4707444-9 (Version None)
Quarter: 2005Q3

REPORT INFORMATION
  Report Type: 
  Country: None (occurrence: None)
  Receive Date: 20050706
  Receipt Date: 20050509
  Transmission Date: 20060218
  Serious: Yes (Death)
  Sender: FDA-Public Use
  Company Number: GB-BRACCO-BRO-008668

PATIENT
  Sex: Male
  Weight: 90 kg

DRUGS (4)
  1. PROHANCE [Suspect]
     Route: 042
     Dates: start: 20050427, end: 20050427
  2. PROHANCE [Suspect]
     Indication: BACK PAIN
     Route: 042
     Dates: start: 20050427, end: 20050427
  3. PROHANCE [Suspect]
     Route: 042
     Dates: start: 20050427, end: 20050427
  4. SEDATIVES [Interacting]
     Dosage: TWO TABLETS
     Route: 048
     Dates: start: 20050427, end: 20050427

REACTIONS (3)
  - CIRCULATORY COLLAPSE [None]
  - COUGH [None]
  - DYSPNOEA [None]
